FAERS Safety Report 23239963 (Version 1)
Quarter: 2023Q4

REPORT INFORMATION
  Report Type: Spontaneous
  Country: US (occurrence: None)
  Receive Date: 20231128
  Receipt Date: 20231128
  Transmission Date: 20240110
  Serious: Yes (Hospitalization)
  Sender: FDA-Public Use
  Company Number: None

PATIENT
  Sex: Female

DRUGS (1)
  1. ENBREL [Suspect]
     Active Substance: ETANERCEPT
     Indication: Rheumatoid arthritis
     Dosage: 50MG  EVERY 7 DAYS SQ?
     Route: 058
     Dates: start: 202101

REACTIONS (5)
  - Joint swelling [None]
  - Arthralgia [None]
  - Therapy interrupted [None]
  - Pneumonia [None]
  - Atrial fibrillation [None]
